FAERS Safety Report 9920077 (Version 2)
Quarter: 2014Q1

REPORT INFORMATION
  Report Type: Report from Study
  Country: US (occurrence: US)
  Receive Date: 20140224
  Receipt Date: 20140228
  Transmission Date: 20141002
  Serious: Yes (Death)
  Sender: FDA-Public Use
  Company Number: US-SA-2014SA017680

PATIENT
  Age: 40 Year
  Sex: Male

DRUGS (3)
  1. AUBAGIO [Suspect]
     Indication: RELAPSING-REMITTING MULTIPLE SCLEROSIS
     Route: 048
     Dates: start: 20130228, end: 201307
  2. BACLOFEN [Concomitant]
     Indication: MUSCLE SPASTICITY
     Dosage: 10 MG BID - QID PRN
     Route: 048
     Dates: start: 2010, end: 2014
  3. ETHYL FUMARATE ZINC/DIMETHYL FUMARATE/ETHYL FUMARATE MAGNESIUM/ETHYL FUMARATE CALCIUM [Concomitant]
     Indication: RELAPSING-REMITTING MULTIPLE SCLEROSIS
     Route: 065
     Dates: start: 201307

REACTIONS (1)
  - Completed suicide [Fatal]
